FAERS Safety Report 10562856 (Version 4)
Quarter: 2015Q1

REPORT INFORMATION
  Report Type: Spontaneous
  Country: US (occurrence: US)
  Receive Date: 20141104
  Receipt Date: 20150326
  Transmission Date: 20150720
  Serious: Yes (Death, Hospitalization, Other)
  Sender: FDA-Public Use
  Company Number: US-PFIZER INC-2014302673

PATIENT
  Age: 3 Year
  Sex: Female

DRUGS (6)
  1. CHOLECALCIFEROL [Concomitant]
     Active Substance: CHOLECALCIFEROL
     Dosage: 2000 IU, DAILY
     Dates: end: 20141017
  2. HYDROCORTISONE. [Concomitant]
     Active Substance: HYDROCORTISONE
     Indication: ADRENAL INSUFFICIENCY
     Dosage: 1.25 MG, EVERY 8 HRS + STRESS DOSING
     Dates: start: 2012, end: 20141017
  3. GENOTROPIN [Suspect]
     Active Substance: SOMATROPIN
     Indication: HYPOPITUITARISM
     Dosage: 0.25 MG, DAILY
     Route: 058
     Dates: end: 20141017
  4. CORTEL [Concomitant]
     Indication: SECONDARY ADRENOCORTICAL INSUFFICIENCY
     Dosage: 1.2 MG, 3X/DAY (EVERY 8 HOURS)
  5. GENOTROPIN [Suspect]
     Active Substance: SOMATROPIN
     Indication: GROWTH HORMONE DEFICIENCY
     Dosage: 0.3 MG, 6 DAYS/WEEK (EVERY DAY EXCEPT SATURDAY)
     Route: 058
     Dates: start: 201303
  6. LEVOTHYROXINE [Concomitant]
     Active Substance: LEVOTHYROXINE
     Indication: HYPOTHYROIDISM
     Dosage: 44 ?G, DAILY
     Dates: start: 2012, end: 20141017

REACTIONS (4)
  - Clostridium difficile infection [Fatal]
  - Pyelonephritis [Fatal]
  - Urosepsis [Fatal]
  - Cardiac arrest [Fatal]
